FAERS Safety Report 5923989-8 (Version None)
Quarter: 2008Q4

REPORT INFORMATION
  Report Type: 
  Country: None (occurrence: None)
  Receive Date: 20081020
  Receipt Date: 20081017
  Transmission Date: 20090506
  Serious: Yes (Hospitalization)
  Sender: FDA-Public Use
  Company Number: US-BRISTOL-MYERS SQUIBB COMPANY-14373401

PATIENT
  Age: 58 Year
  Sex: Male
  Weight: 66 kg

DRUGS (3)
  1. CETUXIMAB [Suspect]
     Indication: NASAL SINUS CANCER
     Dosage: THERAPY STARTED ON 13-AUG-2008
     Route: 042
     Dates: start: 20080801, end: 20080801
  2. CISPLATIN [Suspect]
     Indication: NASAL SINUS CANCER
     Route: 042
     Dates: start: 20080929, end: 20080929
  3. RADIATION THERAPY [Suspect]
     Indication: NASAL SINUS CANCER

REACTIONS (1)
  - ANOREXIA [None]
